FAERS Safety Report 22783818 (Version 6)
Quarter: 2023Q4

REPORT INFORMATION
  Report Type: Report from Study
  Country: US (occurrence: US)
  Receive Date: 20230803
  Receipt Date: 20231212
  Transmission Date: 20240110
  Serious: No
  Sender: FDA-Public Use
  Company Number: US-002147023-NVSC2023US170222

PATIENT
  Sex: Female

DRUGS (1)
  1. KESIMPTA [Suspect]
     Active Substance: OFATUMUMAB
     Indication: Multiple sclerosis
     Dosage: 20 MG, OTHER (AT WEEK 0, WEEK 1 AND WEEK 2 AS DIRECTED)
     Route: 058

REACTIONS (3)
  - Pain [Unknown]
  - Injection site erythema [Unknown]
  - Injection site haemorrhage [Recovered/Resolved]
